FAERS Safety Report 6738357-9 (Version None)
Quarter: 2010Q2

REPORT INFORMATION
  Report Type: 
  Country: None (occurrence: None)
  Receive Date: 20100520
  Receipt Date: 20100507
  Transmission Date: 20101027
  Serious: Yes (Hospitalization)
  Sender: FDA-Public Use
  Company Number: 7004387

PATIENT
  Age: 45 Year
  Sex: Female

DRUGS (2)
  1. REBIF [Suspect]
     Indication: MULTIPLE SCLEROSIS
     Dosage: 44 MCG, 3 IN 1 WK, SUBCUTANEOUS
     Route: 058
     Dates: start: 20091101
  2. H1N1 FLU VACCINE (INFLUENZA VIRUS VACCINE MONOVALENT) [Concomitant]

REACTIONS (3)
  - CARDIAC ARREST [None]
  - HEADACHE [None]
  - SYNCOPE [None]
